FAERS Safety Report 15788697 (Version 2)
Quarter: 2019Q1

REPORT INFORMATION
  Report Type: Report from Study
  Country: US (occurrence: US)
  Receive Date: 20190104
  Receipt Date: 20190108
  Transmission Date: 20190417
  Serious: No
  Sender: FDA-Public Use
  Company Number: PHEH2018US055352

PATIENT
  Sex: Female

DRUGS (1)
  1. COSENTYX [Suspect]
     Active Substance: SECUKINUMAB
     Indication: PSORIATIC ARTHROPATHY
     Dosage: 300 MG, QMO
     Route: 058

REACTIONS (15)
  - Ear pain [Unknown]
  - Musculoskeletal discomfort [Unknown]
  - Lymphadenopathy [Unknown]
  - Gait disturbance [Not Recovered/Not Resolved]
  - Pain in extremity [Unknown]
  - Inflammation [Unknown]
  - Precancerous cells present [Unknown]
  - Mobility decreased [Unknown]
  - Limb discomfort [Unknown]
  - Musculoskeletal stiffness [Unknown]
  - Iliotibial band syndrome [Unknown]
  - Nasopharyngitis [Unknown]
  - Joint swelling [Unknown]
  - Swelling [Unknown]
  - Cough [Unknown]
